FAERS Safety Report 5348082-7 (Version None)
Quarter: 2007Q2

REPORT INFORMATION
  Report Type: 
  Country: None (occurrence: None)
  Receive Date: 20070606
  Receipt Date: 20070525
  Transmission Date: 20071010
  Serious: Yes (Hospitalization, Other)
  Sender: FDA-Public Use
  Company Number: HQWYE518102MAR07

PATIENT
  Age: 83 Year
  Sex: Male

DRUGS (5)
  1. CORDARONE [Suspect]
     Indication: ATRIAL FIBRILLATION
     Route: 048
     Dates: start: 19920101, end: 20050101
  2. CORDARONE [Suspect]
     Indication: SUPRAVENTRICULAR EXTRASYSTOLES
     Route: 048
     Dates: start: 20050101, end: 20070201
  3. CORDARONE [Suspect]
     Route: 048
     Dates: start: 20070201
  4. CORENITEC [Concomitant]
     Route: 048
  5. PERINDOPRIL ERBUMINE [Concomitant]
     Route: 048

REACTIONS (8)
  - AMNESIA [None]
  - ANAEMIA MACROCYTIC [None]
  - CEREBRAL ATROPHY [None]
  - DEMYELINATING POLYNEUROPATHY [None]
  - EPILEPSY [None]
  - KERATOCONJUNCTIVITIS SICCA [None]
  - LOSS OF CONSCIOUSNESS [None]
  - TEMPORAL LOBE EPILEPSY [None]
